FAERS Safety Report 4314649-8 (Version None)
Quarter: 2004Q1

REPORT INFORMATION
  Report Type: 
  Country: None (occurrence: None)
  Receive Date: 20040308
  Receipt Date: 20040223
  Transmission Date: 20041129
  Serious: Yes (Hospitalization)
  Sender: FDA-Public Use
  Company Number: 2004EU000372

PATIENT
  Age: 34 Year
  Sex: Male

DRUGS (3)
  1. PROGRAF [Suspect]
     Indication: RENAL TRANSPLANT
     Dates: start: 20000101
  2. CELLCEPT [Concomitant]
  3. PREDNISONE [Concomitant]

REACTIONS (5)
  - BK VIRUS INFECTION [None]
  - GRAFT DYSFUNCTION [None]
  - LEUKOPENIA [None]
  - NEPHRITIS INTERSTITIAL [None]
  - RENAL IMPAIRMENT [None]
